FAERS Safety Report 14679763 (Version 1)
Quarter: 2018Q1

REPORT INFORMATION
  Report Type: Spontaneous
  Country: VN (occurrence: VN)
  Receive Date: 20180326
  Receipt Date: 20180326
  Transmission Date: 20180509
  Serious: Yes (Hospitalization)
  Sender: FDA-Public Use
  Company Number: VN-JNJFOC-20180326268

PATIENT
  Age: 59 Year

DRUGS (2)
  1. REMICADE [Suspect]
     Active Substance: INFLIXIMAB
     Indication: RHEUMATOID ARTHRITIS
     Route: 042
  2. REMICADE [Suspect]
     Active Substance: INFLIXIMAB
     Indication: RHEUMATOID ARTHRITIS
     Route: 042
     Dates: start: 201802

REACTIONS (4)
  - Blood pressure decreased [Unknown]
  - Infusion related reaction [Unknown]
  - Rash generalised [Unknown]
  - Joint swelling [Unknown]

NARRATIVE: CASE EVENT DATE: 201802
